FAERS Safety Report 9563627 (Version 1)
Quarter: 2013Q3

REPORT INFORMATION
  Report Type: Spontaneous
  Country: US (occurrence: None)
  Receive Date: 20130926
  Receipt Date: 20130926
  Transmission Date: 20140515
  Serious: Yes (Life-Threatening, Other)
  Sender: FDA-Public Use
  Company Number: None

PATIENT
  Age: 64 Year
  Sex: Male
  Weight: 80.9 kg

DRUGS (1)
  1. ARGATROBAN [Suspect]
     Indication: THROMBOCYTOPENIA
     Route: 050
     Dates: start: 20130915, end: 20130916

REACTIONS (7)
  - Coagulopathy [None]
  - Cardiac arrest [None]
  - Gastrointestinal haemorrhage [None]
  - Thrombocytopenia [None]
  - Respiratory depression [None]
  - International normalised ratio abnormal [None]
  - Hepatic enzyme increased [None]
